FAERS Safety Report 21943069 (Version 2)
Quarter: 2023Q2

REPORT INFORMATION
  Report Type: Other
  Country: US (occurrence: None)
  Receive Date: 20230202
  Receipt Date: 20230407
  Transmission Date: 20230722
  Serious: Yes (Other)
  Sender: FDA-Public Use
  Company Number: US-ROCHE-3272131

PATIENT
  Age: 50 Year
  Sex: Male
  Weight: 90.800 kg

DRUGS (6)
  1. OCREVUS [Suspect]
     Active Substance: OCRELIZUMAB
     Indication: Relapsing-remitting multiple sclerosis
     Dosage: 2ND HALF DOSE RECEIVED ON 21/FEB/2022
     Route: 042
     Dates: start: 20220207, end: 202202
  2. OCREVUS [Suspect]
     Active Substance: OCRELIZUMAB
     Dosage: 02/08/2022, 26/08/2022
     Route: 042
  3. AMPYRA [Concomitant]
     Active Substance: DALFAMPRIDINE
     Route: 048
  4. TYSABRI [Concomitant]
     Active Substance: NATALIZUMAB
  5. MAVENCLAD [Concomitant]
     Active Substance: CLADRIBINE
  6. BACLOFEN [Concomitant]
     Active Substance: BACLOFEN

REACTIONS (2)
  - Multiple sclerosis [Not Recovered/Not Resolved]
  - Drug ineffective [Unknown]

NARRATIVE: CASE EVENT DATE: 20220501
